FAERS Safety Report 15751940 (Version 3)
Quarter: 2019Q2

REPORT INFORMATION
  Report Type: Spontaneous
  Country: DE (occurrence: DE)
  Receive Date: 20181221
  Receipt Date: 20190405
  Transmission Date: 20190711
  Serious: Yes (Hospitalization, Other)
  Sender: FDA-Public Use
  Company Number: DE-BIOGEN-2018BI00672898

PATIENT
  Age: 34 Year
  Sex: Female
  Weight: 46 kg

DRUGS (4)
  1. GAMUNEX [Concomitant]
     Active Substance: HUMAN IMMUNOGLOBULIN G
     Indication: MULTIPLE SCLEROSIS
     Route: 065
     Dates: start: 20141028, end: 20141125
  2. TYSABRI [Suspect]
     Active Substance: NATALIZUMAB
     Indication: MULTIPLE SCLEROSIS
     Dosage: INFUSED OVER ONE HOUR
     Route: 050
     Dates: start: 20081028, end: 20140829
  3. TYSABRI [Suspect]
     Active Substance: NATALIZUMAB
     Route: 050
     Dates: start: 20150309
  4. FOLIC ACID. [Concomitant]
     Active Substance: FOLIC ACID
     Indication: PREGNANCY
     Route: 050
     Dates: start: 201406, end: 201802

REACTIONS (9)
  - Cervical incompetence [Recovered/Resolved]
  - Intrapartum haemorrhage [Unknown]
  - Precipitate labour [Unknown]
  - Maternal exposure during pregnancy [Recovered/Resolved]
  - Sepsis [Unknown]
  - Beta haemolytic streptococcal infection [Unknown]
  - Escherichia vaginitis [Unknown]
  - Perineal injury [Unknown]
  - Vaginal laceration [Unknown]

NARRATIVE: CASE EVENT DATE: 20150207
